FAERS Safety Report 22827882 (Version 2)
Quarter: 2023Q4

REPORT INFORMATION
  Report Type: Spontaneous
  Country: IT (occurrence: IT)
  Receive Date: 20230816
  Receipt Date: 20231005
  Transmission Date: 20240110
  Serious: Yes (Hospitalization)
  Sender: FDA-Public Use
  Company Number: IT-AstraZeneca-2023A067299

PATIENT
  Age: 67 Year
  Sex: Male

DRUGS (6)
  1. CARBOPLATIN [Suspect]
     Active Substance: CARBOPLATIN
     Indication: Non-small cell lung cancer
     Dosage: 479.9  MG, SINGLE
     Route: 042
     Dates: start: 20230309, end: 20230309
  2. CARBOPLATIN [Suspect]
     Active Substance: CARBOPLATIN
     Dosage: 487 MG, SINGLE
     Route: 042
     Dates: start: 20230216
  3. PEMETREXED [Suspect]
     Active Substance: PEMETREXED
     Indication: Non-small cell lung cancer
     Dosage: 1000 MG, SINGLE
     Route: 042
     Dates: start: 20230309, end: 20230309
  4. PEMETREXED [Suspect]
     Active Substance: PEMETREXED
     Dosage: 1000 MG, SINGLE
     Route: 042
     Dates: start: 20230216
  5. OSIMERTINIB [Suspect]
     Active Substance: OSIMERTINIB
     Indication: Non-small cell lung cancer
     Dosage: 80 MG, 1X/DAY
     Route: 048
     Dates: start: 20210203, end: 20230215
  6. PLACEBO [Suspect]
     Active Substance: UNSPECIFIED INGREDIENT
     Indication: Non-small cell lung cancer
     Dosage: UNK, DAILY
     Route: 048
     Dates: start: 20210203, end: 20230215

REACTIONS (2)
  - Respiratory failure [Recovered/Resolved]
  - Off label use [Unknown]

NARRATIVE: CASE EVENT DATE: 20230316
